FAERS Safety Report 20064043 (Version 1)
Quarter: 2021Q4

REPORT INFORMATION
  Report Type: Spontaneous
  Country: US (occurrence: US)
  Receive Date: 20211112
  Receipt Date: 20211112
  Transmission Date: 20220303
  Serious: No
  Sender: FDA-Public Use
  Company Number: US-ORGANON-O2110USA002678

PATIENT
  Age: 28 Year
  Sex: Male

DRUGS (2)
  1. PROSCAR [Suspect]
     Active Substance: FINASTERIDE
     Indication: Haematospermia
     Dosage: UNK
     Route: 048
  2. PROSCAR [Suspect]
     Active Substance: FINASTERIDE
     Indication: Orgasm abnormal

REACTIONS (1)
  - Product use in unapproved indication [Unknown]
